FAERS Safety Report 12674436 (Version 1)
Quarter: 2016Q3

REPORT INFORMATION
  Report Type: Spontaneous
  Country: US (occurrence: US)
  Receive Date: 20160822
  Receipt Date: 20160822
  Transmission Date: 20161109
  Serious: No
  Sender: FDA-Public Use
  Company Number: US-BEH-2016058713

PATIENT
  Sex: Male
  Weight: 78.93 kg

DRUGS (19)
  1. ZEMAIRA [Suspect]
     Active Substance: .ALPHA.1-PROTEINASE INHIBITOR HUMAN
     Indication: ALPHA-1 ANTI-TRYPSIN DEFICIENCY
     Route: 042
     Dates: start: 20080909
  2. XANAX [Concomitant]
     Active Substance: ALPRAZOLAM
  3. DIPHENHYDRAMINE. [Concomitant]
     Active Substance: DIPHENHYDRAMINE
  4. HEPARIN [Concomitant]
     Active Substance: HEPARIN SODIUM
  5. SYMBICORT [Concomitant]
     Active Substance: BUDESONIDE\FORMOTEROL FUMARATE DIHYDRATE
  6. DUONEB [Concomitant]
     Active Substance: ALBUTEROL SULFATE\IPRATROPIUM BROMIDE
  7. NORMAL SALINE [Concomitant]
     Active Substance: SODIUM CHLORIDE
  8. STERILE WATER FOR INJECTION [Concomitant]
     Active Substance: WATER
  9. SODIUM CHLORIDE 0.9% [Concomitant]
     Active Substance: SODIUM CHLORIDE
  10. ROBAXIN [Concomitant]
     Active Substance: METHOCARBAMOL
  11. DALIRESP [Concomitant]
     Active Substance: ROFLUMILAST
  12. VITAMIN D3 [Concomitant]
     Active Substance: CHOLECALCIFEROL
  13. LMX [Concomitant]
     Active Substance: LIDOCAINE
  14. PROVENTIL [Concomitant]
     Active Substance: ALBUTEROL
  15. NEXIUM [Concomitant]
     Active Substance: ESOMEPRAZOLE MAGNESIUM
  16. EPIPEN [Concomitant]
     Active Substance: EPINEPHRINE
  17. METHOCARBAMOL. [Concomitant]
     Active Substance: METHOCARBAMOL
  18. OXYCODONE-ACETAMINOPHEN [Concomitant]
     Active Substance: ACETAMINOPHEN\OXYCODONE HYDROCHLORIDE
  19. CATHFLO ACTIVASE [Concomitant]
     Active Substance: ALTEPLASE

REACTIONS (1)
  - Sinus congestion [Unknown]
